FAERS Safety Report 6263447-7 (Version None)
Quarter: 2009Q3

REPORT INFORMATION
  Report Type: 
  Country: None (occurrence: None)
  Receive Date: 20090710
  Receipt Date: 20090227
  Transmission Date: 20100115
  Serious: No
  Sender: FDA-Public Use
  Company Number: A0770935A

PATIENT
  Sex: Female

DRUGS (3)
  1. FLOVENT [Suspect]
     Indication: CHRONIC OBSTRUCTIVE PULMONARY DISEASE
     Dosage: 2SPR TWICE PER DAY
     Route: 055
     Dates: start: 20090101
  2. SEREVENT [Concomitant]
  3. ZYRTEC [Concomitant]

REACTIONS (4)
  - DYSPNOEA [None]
  - MALAISE [None]
  - PALPITATIONS [None]
  - PRODUCT QUALITY ISSUE [None]
